FAERS Safety Report 24238499 (Version 1)
Quarter: 2024Q3

REPORT INFORMATION
  Report Type: Spontaneous
  Country: KR (occurrence: KR)
  Receive Date: 20240822
  Receipt Date: 20240822
  Transmission Date: 20241017
  Serious: Yes (Death)
  Sender: ELI LILLY AND CO
  Company Number: KR-ELI_LILLY_AND_COMPANY-KR202408011629

PATIENT
  Sex: Female

DRUGS (1)
  1. CYRAMZA [Suspect]
     Active Substance: RAMUCIRUMAB
     Indication: Product used for unknown indication
     Dosage: UNK UNK, UNKNOWN
     Route: 042

REACTIONS (1)
  - Death [Fatal]
